FAERS Safety Report 16940234 (Version 1)
Quarter: 2019Q4

REPORT INFORMATION
  Report Type: Spontaneous
  Country: DK (occurrence: DK)
  Receive Date: 20191021
  Receipt Date: 20191021
  Transmission Date: 20200122
  Serious: Yes (Hospitalization)
  Sender: FDA-Public Use
  Company Number: DK-HTU-2019DK019682

PATIENT
  Age: 78 Year
  Sex: Female

DRUGS (2)
  1. AKYNZEO [Suspect]
     Active Substance: NETUPITANT\PALONOSETRON HYDROCHLORIDE
     Indication: PROPHYLAXIS OF NAUSEA AND VOMITING
     Dosage: STYRKE: 300 MG / 0,5 MG. DOSIS: 1 KAPSEL 1 TIME F?R BEHANDLING MED NAVELBINE.
     Route: 048
     Dates: start: 20190812
  2. NAVELBINE [Interacting]
     Active Substance: VINORELBINE TARTRATE
     Indication: PRODUCT USED FOR UNKNOWN INDICATION
     Dosage: DOSIS: 20 OG 80 MG.
     Route: 048
     Dates: start: 20190812

REACTIONS (9)
  - Neutropenia [Recovered/Resolved]
  - Diarrhoea [Recovered/Resolved]
  - Dyspnoea [Unknown]
  - Abdominal distension [Recovered/Resolved]
  - Pyrexia [Recovered/Resolved]
  - Constipation [Recovered/Resolved]
  - Abdominal pain [Recovered/Resolved]
  - Drug interaction [Unknown]
  - Leukopenia [Unknown]

NARRATIVE: CASE EVENT DATE: 201908
